FAERS Safety Report 10258444 (Version 1)
Quarter: 2014Q2

REPORT INFORMATION
  Report Type: Spontaneous
  Country: US (occurrence: None)
  Receive Date: 20140623
  Receipt Date: 20140623
  Transmission Date: 20141212
  Serious: Yes (Other)
  Sender: FDA-Public Use
  Company Number: 20140332

PATIENT
  Age: 76 Year
  Sex: Male

DRUGS (2)
  1. VENOFER [Suspect]
     Indication: ANAEMIA
     Dosage: PUSH
     Route: 042
     Dates: start: 20140528
  2. VENOFER [Suspect]
     Indication: RENAL FAILURE CHRONIC
     Dosage: PUSH
     Route: 042
     Dates: start: 20140528

REACTIONS (4)
  - Infusion site swelling [None]
  - Infusion site discolouration [None]
  - Infusion site extravasation [None]
  - Cellulitis [None]
